FAERS Safety Report 9250565 (Version 1)
Quarter: 2013Q1

REPORT INFORMATION
  Report Type: Spontaneous
  Country: US (occurrence: None)
  Receive Date: 20130305
  Receipt Date: 20130305
  Transmission Date: 20140127
  Serious: Yes (Other)
  Sender: FDA-Public Use
  Company Number: 163-21880-12092886

PATIENT
  Age: 62 Year
  Sex: Female

DRUGS (3)
  1. REVLIMID [Suspect]
     Indication: MYELODYSPLASTIC SYNDROME
     Route: 048
     Dates: start: 20120720
  2. SIMVASTATIN (SIMVASTATIN) [Concomitant]
  3. CLOPIDOGREL (CLOPIDOGREL) [Concomitant]

REACTIONS (1)
  - Anaemia [None]
